FAERS Safety Report 6986407-7 (Version None)
Quarter: 2010Q3

REPORT INFORMATION
  Report Type: 
  Country: None (occurrence: None)
  Receive Date: 20100913
  Receipt Date: 20100826
  Transmission Date: 20110219
  Serious: Yes (Hospitalization)
  Sender: FDA-Public Use
  Company Number: 1000016095

PATIENT
  Age: 69 Year
  Sex: Male

DRUGS (5)
  1. NEBIVOLOL HCL [Suspect]
     Dosage: 5 MG (5 MG, 1 IN 1 D), ORAL
     Route: 048
     Dates: end: 20100610
  2. CRESTOR [Suspect]
     Dosage: 5 MG (5 MG, 1 IN 1 D), ORAL
     Route: 048
     Dates: start: 20090701, end: 20100610
  3. CORENITEC [Suspect]
     Dosage: ORAL
     Route: 048
     Dates: end: 20100610
  4. AMLODIPINE [Concomitant]
  5. NEXIUM [Concomitant]

REACTIONS (5)
  - ANTINUCLEAR ANTIBODY INCREASED [None]
  - EOSINOPHILIA [None]
  - HYPOXIA [None]
  - INTERSTITIAL LUNG DISEASE [None]
  - LYMPHOCYTOSIS [None]
